FAERS Safety Report 23618856 (Version 1)
Quarter: 2024Q1

REPORT INFORMATION
  Report Type: Spontaneous
  Country: US (occurrence: US)
  Receive Date: 20240311
  Receipt Date: 20240311
  Transmission Date: 20240410
  Serious: No
  Sender: FDA-Public Use
  Company Number: US-PFIZER INC-202400060366

PATIENT
  Age: 62 Year
  Sex: Female

DRUGS (6)
  1. PAXLOVID [Suspect]
     Active Substance: NIRMATRELVIR\RITONAVIR
     Indication: COVID-19 treatment
     Dosage: UNK
     Dates: start: 20240307
  2. LIPITOR [Concomitant]
     Active Substance: ATORVASTATIN CALCIUM
     Dosage: TAKEN FOR 4 YEARS STOPPED BEFORE TAKING PAXLOVID
  3. METOPROLOL [Concomitant]
     Active Substance: METOPROLOL
     Dosage: 12.5 MG IN AM
     Dates: start: 20240101, end: 20240305
  4. FISH OIL [Concomitant]
     Active Substance: FISH OIL
     Indication: Blood triglycerides abnormal
     Dosage: 1000 MG, 2X/DAY
     Dates: start: 20240101
  5. CALCIUM MAGNESIUM [CALCIUM;MAGNESIUM] [Concomitant]
     Dosage: TAKEN FOR MORE THAN 5 YEARS
  6. CURCUMIN [Concomitant]
     Active Substance: CURCUMIN
     Dosage: TAKEN 5 YEARS, 1X/DAY

REACTIONS (4)
  - Dysgeusia [Not Recovered/Not Resolved]
  - Gastrointestinal disorder [Not Recovered/Not Resolved]
  - Headache [Not Recovered/Not Resolved]
  - Abdominal pain upper [Not Recovered/Not Resolved]

NARRATIVE: CASE EVENT DATE: 20240307
